FAERS Safety Report 4879575-4 (Version None)
Quarter: 2006Q1

REPORT INFORMATION
  Report Type: 
  Country: None (occurrence: None)
  Receive Date: 20060111
  Receipt Date: 20051226
  Transmission Date: 20060701
  Serious: Yes (Hospitalization)
  Sender: FDA-Public Use
  Company Number: DSA_27599_2005

PATIENT
  Age: 30 Year
  Sex: Male

DRUGS (2)
  1. LORAZEPAM [Suspect]
     Dosage: DF ONCE PO
     Route: 048
     Dates: start: 20051224, end: 20051224
  2. BEER [Suspect]
     Dosage: DF PO
     Route: 048
     Dates: start: 20051224, end: 20051224

REACTIONS (6)
  - COMA [None]
  - MIOSIS [None]
  - MULTIPLE DRUG OVERDOSE INTENTIONAL [None]
  - POOR PERIPHERAL CIRCULATION [None]
  - RESPIRATORY FAILURE [None]
  - SUICIDE ATTEMPT [None]
